FAERS Safety Report 11696724 (Version 1)
Quarter: 2015Q4

REPORT INFORMATION
  Report Type: Spontaneous
  Country: CA (occurrence: CA)
  Receive Date: 20151104
  Receipt Date: 20151104
  Transmission Date: 20160304
  Serious: Yes (Other)
  Sender: FDA-Public Use
  Company Number: CA-SA-2015SA170989

PATIENT
  Age: 63 Year
  Sex: Male

DRUGS (3)
  1. FLUOROURACIL. [Concomitant]
     Active Substance: FLUOROURACIL
     Indication: COLON CANCER METASTATIC
  2. LEUCOVORIN. [Concomitant]
     Active Substance: LEUCOVORIN
     Indication: COLON CANCER METASTATIC
  3. ELOXATIN [Suspect]
     Active Substance: OXALIPLATIN
     Indication: COLON CANCER METASTATIC
     Route: 065

REACTIONS (1)
  - Malignant neoplasm progression [Unknown]
